FAERS Safety Report 4349069-3 (Version None)
Quarter: 2004Q2

REPORT INFORMATION
  Report Type: 
  Country: None (occurrence: None)
  Receive Date: 20040427
  Receipt Date: 20040422
  Transmission Date: 20050107
  Serious: Yes (Hospitalization)
  Sender: FDA-Public Use
  Company Number: 04-04-0588

PATIENT
  Age: 37 Year
  Sex: Female

DRUGS (1)
  1. CLOZAPINE [Suspect]
     Dosage: 250-500 MG QD ORAL
     Route: 048
     Dates: start: 20020301

REACTIONS (2)
  - PNEUMONIA ASPIRATION [None]
  - PYREXIA [None]
